FAERS Safety Report 6886506-4 (Version None)
Quarter: 2010Q3

REPORT INFORMATION
  Report Type: 
  Country: None (occurrence: None)
  Receive Date: 20100730
  Receipt Date: 20100722
  Transmission Date: 20110219
  Serious: Yes (Hospitalization, Other)
  Sender: FDA-Public Use
  Company Number: US-BIOGENIDEC-2008BI003070

PATIENT
  Sex: Male
  Weight: 72 kg

DRUGS (4)
  1. AVONEX [Suspect]
     Indication: MULTIPLE SCLEROSIS
     Route: 030
     Dates: start: 20020523
  2. AVONEX [Suspect]
     Route: 030
  3. VICODIN [Concomitant]
     Indication: PAIN
     Route: 048
  4. BACLOFEN [Concomitant]
     Indication: MUSCLE SPASMS
     Route: 048

REACTIONS (9)
  - CARDIOMEGALY [None]
  - CARDIOMYOPATHY [None]
  - CONVULSION [None]
  - CORONARY ARTERY OCCLUSION [None]
  - DYSPNOEA [None]
  - NEEDLE TRACK MARKS [None]
  - POST PROCEDURAL DISCOMFORT [None]
  - PULMONARY OEDEMA [None]
  - SILENT MYOCARDIAL INFARCTION [None]
